FAERS Safety Report 6780057-3 (Version None)
Quarter: 2010Q2

REPORT INFORMATION
  Report Type: 
  Country: None (occurrence: None)
  Receive Date: 20100618
  Receipt Date: 20100609
  Transmission Date: 20101027
  Serious: Yes (Other)
  Sender: FDA-Public Use
  Company Number: US-PFIZER INC-2010073046

PATIENT
  Sex: Female
  Weight: 58.957 kg

DRUGS (4)
  1. LIPITOR [Suspect]
     Indication: BLOOD CHOLESTEROL INCREASED
     Dosage: 10 MG, DAILY
     Route: 048
     Dates: start: 20091021, end: 20091130
  2. CLARITIN-D [Concomitant]
     Indication: HYPERSENSITIVITY
     Dosage: UNK
  3. ESTRADIOL [Concomitant]
     Indication: OSTEOPOROSIS
     Dosage: 1 MG, UNK
  4. PROMETRIUM [Concomitant]
     Indication: OSTEOPOROSIS
     Dosage: 100 MG, UNK

REACTIONS (6)
  - ASTHENIA [None]
  - BALANCE DISORDER [None]
  - BLOOD CHOLESTEROL ABNORMAL [None]
  - HEAD DISCOMFORT [None]
  - MUSCLE SPASMS [None]
  - TEMPERATURE INTOLERANCE [None]
